FAERS Safety Report 8152067-5 (Version None)
Quarter: 2012Q1

REPORT INFORMATION
  Report Type: 
  Country: None (occurrence: None)
  Receive Date: 20120221
  Receipt Date: 20120215
  Transmission Date: 20120608
  Serious: Yes (Hospitalization, Other)
  Sender: FDA-Public Use
  Company Number: FR-PFIZER INC-2012040273

PATIENT
  Age: 55 Year
  Sex: Male

DRUGS (4)
  1. PROZAC [Concomitant]
     Dosage: UNK
  2. PROCORALAN [Concomitant]
     Dosage: UNK
  3. FINASTERIDE [Suspect]
     Indication: ALOPECIA
     Dosage: UNK
     Route: 048
     Dates: start: 20060101, end: 20120101
  4. ATORVASTATIN [Suspect]
     Indication: HYPERCHOLESTEROLAEMIA
     Dosage: UNK
     Route: 048
     Dates: start: 20010101, end: 20120101

REACTIONS (1)
  - INTERSTITIAL LUNG DISEASE [None]
